FAERS Safety Report 13908947 (Version 1)
Quarter: 2017Q3

REPORT INFORMATION
  Report Type: Spontaneous
  Country: US (occurrence: US)
  Receive Date: 20170828
  Receipt Date: 20170828
  Transmission Date: 20171127
  Serious: Yes (Other)
  Sender: FDA-Public Use
  Company Number: PE-JNJCP-30000401866

PATIENT
  Age: 32 Year
  Sex: Female
  Weight: 60 kg

DRUGS (1)
  1. NEUTROGENA ON-THE-SPOT ACNE TREATMENT VANISHING FORMULA [Suspect]
     Active Substance: BENZOYL PEROXIDE
     Indication: ACNE
     Dosage: ONCE A DAY FOR THE FIRST WEEK AND TWICE A DAY IN THE SECOND WEEK
     Route: 061
     Dates: start: 20170801, end: 20170806

REACTIONS (6)
  - Application site dryness [Recovering/Resolving]
  - Application site pruritus [Recovering/Resolving]
  - Application site pain [Recovering/Resolving]
  - Application site inflammation [Recovering/Resolving]
  - Application site pain [Recovering/Resolving]
  - Discomfort [None]

NARRATIVE: CASE EVENT DATE: 201708
